FAERS Safety Report 8265624 (Version 4)
Quarter: 2012Q4

REPORT INFORMATION
  Report Type: 
  Country: CA (occurrence: CA)
  Receive Date: 20111128
  Receipt Date: 20121001
  Transmission Date: 20130627
  Serious: Yes (Other)
  Sender: FDA-Public Use
  Company Number: CA-ROCHE-1015772

PATIENT
  Age: 42 None
  Sex: Male

DRUGS (2)
  1. XOLAIR [Suspect]
     Indication: ASTHMA
     Route: 058
     Dates: start: 20091109
  2. XOLAIR [Suspect]
     Route: 058
     Dates: start: 20120919

REACTIONS (7)
  - Blood pressure increased [Unknown]
  - Acne [Unknown]
  - Throat irritation [Unknown]
  - Injection site bruising [Recovered/Resolved]
  - Cough [Unknown]
  - Palpitations [Recovering/Resolving]
  - Stress [Unknown]
